FAERS Safety Report 5946806-9 (Version None)
Quarter: 2008Q4

REPORT INFORMATION
  Report Type: 
  Country: None (occurrence: None)
  Receive Date: 20081110
  Receipt Date: 20081030
  Transmission Date: 20090506
  Serious: Yes (Hospitalization)
  Sender: FDA-Public Use
  Company Number: US-JNJFOC-20081101129

PATIENT
  Age: 68 Year
  Sex: Female
  Weight: 99.27 kg

DRUGS (1)
  1. DORIBAX [Suspect]
     Indication: PANCREATITIS ACUTE
     Route: 042

REACTIONS (3)
  - CHILLS [None]
  - DYSPNOEA [None]
  - TACHYPNOEA [None]
